FAERS Safety Report 8246240-5 (Version None)
Quarter: 2012Q1

REPORT INFORMATION
  Report Type: 
  Country: None (occurrence: None)
  Receive Date: 20120330
  Receipt Date: 20120326
  Transmission Date: 20120608
  Serious: Yes (Other)
  Sender: FDA-Public Use
  Company Number: US-BAYER-201031523NA

PATIENT
  Age: 42 Year
  Sex: Female
  Weight: 59 kg

DRUGS (14)
  1. YAZ [Suspect]
     Indication: CONTRACEPTION
     Dosage: UNK
     Route: 048
     Dates: start: 20030101
  2. CITALOPRAM HYDROBROMIDE [Concomitant]
     Indication: ANXIETY
     Dosage: UNK
     Dates: start: 20060101
  3. YASMIN [Suspect]
     Indication: OVARIAN CYST
  4. NSAID'S [Concomitant]
     Dosage: UNK UNK, PRN
  5. ALBUTEROL [Concomitant]
  6. PAXIL [Concomitant]
  7. LISINOPRIL [Concomitant]
  8. YAZ [Suspect]
     Indication: OVARIAN CYST
  9. YASMIN [Suspect]
     Indication: CONTRACEPTION
     Dosage: UNK
     Route: 048
     Dates: start: 20030101
  10. HYDROCHLOROTHIAZIDE [Concomitant]
  11. ZELNORM [Concomitant]
  12. CLONAZEPAM [Concomitant]
  13. LORAZEPAM [Concomitant]
  14. ADVAIR DISKUS 100/50 [Concomitant]

REACTIONS (5)
  - DYSPNOEA [None]
  - LUNG NEOPLASM [None]
  - CHEST PAIN [None]
  - ASTHMA [None]
  - PULMONARY EMBOLISM [None]
